FAERS Safety Report 6786594-X (Version None)
Quarter: 2010Q2

REPORT INFORMATION
  Report Type: 
  Country: None (occurrence: None)
  Receive Date: 20100623
  Receipt Date: 20100622
  Transmission Date: 20101027
  Serious: No
  Sender: FDA-Public Use
  Company Number: US-ROXANE LABORATORIES, INC.-2010-RO-00422RO

PATIENT
  Sex: Female

DRUGS (7)
  1. HYDROMORPHONE [Suspect]
     Indication: ABDOMINAL PAIN
     Route: 048
  2. HYDROMORPHONE [Suspect]
     Indication: CERVIX CARCINOMA
  3. OXYCONTIN [Concomitant]
  4. VESICARE [Concomitant]
  5. XANAX [Concomitant]
  6. CYMBALTA [Concomitant]
  7. NEXIUM [Concomitant]

REACTIONS (2)
  - ARTHRALGIA [None]
  - DRUG SCREEN NEGATIVE [None]
